FAERS Safety Report 8921948 (Version 1)
Quarter: 2012Q4

REPORT INFORMATION
  Report Type: Spontaneous
  Country: US (occurrence: None)
  Receive Date: 20121119
  Receipt Date: 20121119
  Transmission Date: 20130627
  Serious: Yes (Hospitalization)
  Sender: FDA-Public Use
  Company Number: None

PATIENT
  Age: 64 Year
  Sex: Male
  Weight: 119.75 kg

DRUGS (1)
  1. RIVAROXABAN [Suspect]

REACTIONS (1)
  - Pericardial haemorrhage [None]
